FAERS Safety Report 4994708-7 (Version None)
Quarter: 2006Q1

REPORT INFORMATION
  Report Type: 
  Country: None (occurrence: None)
  Receive Date: 20060313
  Receipt Date: 20050629
  Transmission Date: 20060701
  Serious: Yes (Hospitalization, Disabling, Other)
  Sender: FDA-Public Use
  Company Number: PHEH2005US04636

PATIENT
  Age: 14 Year
  Sex: Male
  Weight: 57.9 kg

DRUGS (2)
  1. TRILEPTAL [Suspect]
     Indication: CONVULSION
     Dosage: 450 MG,BID,ORAL
     Route: 048
     Dates: start: 20041213, end: 20050420
  2. DILANTIN [Suspect]
     Indication: CONVULSION
     Dosage: 100 MG,BID,ORAL
     Route: 048
     Dates: start: 20040328, end: 20050413

REACTIONS (5)
  - C-REACTIVE PROTEIN INCREASED [None]
  - DERMATITIS [None]
  - MALAISE [None]
  - PYREXIA [None]
  - STEVENS-JOHNSON SYNDROME [None]
